FAERS Safety Report 6855735-8 (Version None)
Quarter: 2010Q3

REPORT INFORMATION
  Report Type: 
  Country: None (occurrence: None)
  Receive Date: 20100719
  Receipt Date: 20090721
  Transmission Date: 20110219
  Serious: No
  Sender: FDA-Public Use
  Company Number: US-KINGPHARMUSA00001-K200900865

PATIENT
  Sex: Female

DRUGS (2)
  1. LEVOXYL [Suspect]
     Indication: HYPOTHYROIDISM
     Dosage: 88 MCG, QD
     Route: 048
     Dates: end: 20090701
  2. LEVOXYL [Suspect]
     Dosage: 100 MCG, UNK
     Dates: start: 20070801

REACTIONS (5)
  - BLOOD THYROID STIMULATING HORMONE DECREASED [None]
  - DIARRHOEA [None]
  - DIZZINESS [None]
  - PSYCHOMOTOR HYPERACTIVITY [None]
  - VERTIGO [None]
